FAERS Safety Report 13069084 (Version 6)
Quarter: 2017Q1

REPORT INFORMATION
  Report Type: Spontaneous
  Country: CA (occurrence: CA)
  Receive Date: 20161228
  Receipt Date: 20170130
  Transmission Date: 20170428
  Serious: Yes (Other)
  Sender: FDA-Public Use
  Company Number: CA-HIKMA PHARMACEUTICALS CO. LTD-2016CA014116

PATIENT

DRUGS (14)
  1. SERTRALINE                         /01011402/ [Concomitant]
     Active Substance: SERTRALINE HYDROCHLORIDE
     Dosage: UNK
  2. NORVASC [Concomitant]
     Active Substance: AMLODIPINE BESYLATE
     Dosage: UNK
  3. VITAMIN D [Concomitant]
     Active Substance: CHOLECALCIFEROL
     Dosage: UNK
  4. VITALUX                            /01586901/ [Concomitant]
     Dosage: UNK
  5. CRESTOR [Concomitant]
     Active Substance: ROSUVASTATIN CALCIUM
     Dosage: 10 MG, 1X/DAY
  6. ASACOL [Concomitant]
     Active Substance: MESALAMINE
     Dosage: 800 MG, 1X/DAY
  7. FORXIGA [Concomitant]
     Active Substance: DAPAGLIFLOZIN
     Dosage: UNK
  8. JANUVIA [Concomitant]
     Active Substance: SITAGLIPTIN PHOSPHATE
     Dosage: UNK
  9. INFLECTRA [Suspect]
     Active Substance: INFLIXIMAB-DYYB
     Indication: RHEUMATOID ARTHRITIS
     Dosage: 300 MG, CYCLIC (EVERY 0, 2,6 WEEKS, THEN EVERY 8 WEEKS FOR 12 MONTHS)
     Route: 042
     Dates: start: 20161208
  10. ENBREL [Suspect]
     Active Substance: ETANERCEPT
     Dosage: UNK
  11. HYDROCHLOROTHIAZIDE. [Concomitant]
     Active Substance: HYDROCHLOROTHIAZIDE
     Dosage: UNK
  12. RAMIPRIL. [Concomitant]
     Active Substance: RAMIPRIL
     Dosage: UNK
  13. METHOTREXATE SODIUM LEDERLE [Suspect]
     Active Substance: METHOTREXATE SODIUM
     Dosage: 2.5 MG, WEEKLY
     Route: 048
  14. FOLIC ACID. [Concomitant]
     Active Substance: FOLIC ACID
     Dosage: UNK

REACTIONS (2)
  - Laceration [Recovered/Resolved]
  - Blood pressure increased [Recovered/Resolved]

NARRATIVE: CASE EVENT DATE: 20161215
